FAERS Safety Report 8587070-4 (Version None)
Quarter: 2012Q3

REPORT INFORMATION
  Report Type: 
  Country: None (occurrence: None)
  Receive Date: 20120810
  Receipt Date: 20120730
  Transmission Date: 20120928
  Serious: No
  Sender: FDA-Public Use
  Company Number: US-ASTRAZENECA-2012SE53777

PATIENT
  Age: 52 Year
  Sex: Female
  Weight: 78.5 kg

DRUGS (10)
  1. SEROQUEL XR [Suspect]
     Indication: ANXIETY
     Route: 048
  2. PRAVASTATIN [Concomitant]
  3. SEROQUEL XR [Suspect]
     Indication: DEPRESSION
     Route: 048
  4. SEROQUEL XR [Suspect]
     Indication: SLEEP DISORDER
     Route: 048
  5. LOPRESSOR [Concomitant]
  6. PAXIL [Concomitant]
  7. KLONOPIN [Concomitant]
  8. SEROQUEL XR [Suspect]
     Indication: BIPOLAR DISORDER
     Route: 048
  9. AMBIEN [Concomitant]
  10. ASPIRIN [Concomitant]

REACTIONS (3)
  - THERAPEUTIC RESPONSE UNEXPECTED [None]
  - INSOMNIA [None]
  - DRUG DOSE OMISSION [None]
